FAERS Safety Report 12201678 (Version 1)
Quarter: 2016Q1

REPORT INFORMATION
  Report Type: Spontaneous
  Country: US (occurrence: US)
  Receive Date: 20160322
  Receipt Date: 20160322
  Transmission Date: 20160526
  Serious: No
  Sender: FDA-Public Use
  Company Number: US-SA-2015SA203433

PATIENT
  Sex: Male

DRUGS (3)
  1. FLONASE [Suspect]
     Active Substance: FLUTICASONE PROPIONATE
     Route: 065
  2. NASACORT ALLERGY 24HR [Suspect]
     Active Substance: TRIAMCINOLONE ACETONIDE
     Dosage: START DATE: 1 WEEK AGO
     Route: 045
  3. AFRIN [Suspect]
     Active Substance: OXYMETAZOLINE
     Route: 065

REACTIONS (6)
  - Paraesthesia [Unknown]
  - Insomnia [Unknown]
  - Drug ineffective [Unknown]
  - Dry mouth [Unknown]
  - Overdose [Unknown]
  - Flushing [Unknown]
